FAERS Safety Report 5286566-0 (Version None)
Quarter: 2007Q2

REPORT INFORMATION
  Report Type: 
  Country: None (occurrence: None)
  Receive Date: 20070404
  Receipt Date: 20070326
  Transmission Date: 20071010
  Serious: Yes (Other)
  Sender: FDA-Public Use
  Company Number: JP-ROCHE-490666

PATIENT
  Sex: Male

DRUGS (2)
  1. TAMIFLU [Suspect]
     Indication: INFLUENZA
     Route: 048
     Dates: start: 20070324, end: 20070324
  2. TAMIFLU [Suspect]
     Route: 048
     Dates: start: 20070325, end: 20070325

REACTIONS (1)
  - VISUAL DISTURBANCE [None]
